FAERS Safety Report 20200889 (Version 2)
Quarter: 2022Q1

REPORT INFORMATION
  Report Type: Report from Study
  Country: CA (occurrence: CA)
  Receive Date: 20211217
  Receipt Date: 20220328
  Transmission Date: 20220423
  Serious: Yes (Hospitalization, Congenital Anomaly, Other)
  Sender: FDA-Public Use
  Company Number: CA-TAKEDA-2021TUS079581

PATIENT
  Sex: Male

DRUGS (2)
  1. VEDOLIZUMAB [Suspect]
     Active Substance: VEDOLIZUMAB
     Indication: Colitis ulcerative
     Dosage: 300 MILLIGRAM
     Route: 063
     Dates: start: 20211015
  2. VEDOLIZUMAB [Suspect]
     Active Substance: VEDOLIZUMAB
     Dosage: 300 MILLIGRAM
     Route: 063

REACTIONS (6)
  - Cleft lip [Unknown]
  - Pneumonia [Unknown]
  - Tracheomalacia [Unknown]
  - Rhinovirus infection [Unknown]
  - Autosomal chromosome anomaly [Unknown]
  - Foetal exposure during pregnancy [Unknown]
